FAERS Safety Report 24760458 (Version 1)
Quarter: 2024Q4

REPORT INFORMATION
  Report Type: Spontaneous
  Country: US (occurrence: US)
  Receive Date: 20241220
  Receipt Date: 20241220
  Transmission Date: 20250114
  Serious: No
  Sender: STALLERGENES
  Company Number: US-STALCOR-2024-AER-02964

PATIENT
  Age: 51 Year
  Sex: Female
  Weight: 141.52 kg

DRUGS (8)
  1. DOG EPITHELIA [Suspect]
     Active Substance: CANIS LUPUS FAMILIARIS SKIN
     Indication: Seasonal allergy
     Route: 060
  2. ALTERNARIA ALTERNATA [Suspect]
     Active Substance: ALTERNARIA ALTERNATA
     Indication: Seasonal allergy
     Route: 060
  3. ELM POLLEN MIX [Suspect]
     Active Substance: ULMUS AMERICANA POLLEN\ULMUS PUMILA POLLEN
     Indication: Seasonal allergy
     Route: 060
  4. STANDARDIZED CAT HAIR [Suspect]
     Active Substance: FELIS CATUS HAIR
     Indication: Seasonal allergy
     Route: 060
  5. STERILE DILUENT FOR ALLERGENIC EXTRACT (GLYCERIN) [Suspect]
     Active Substance: GLYCERIN
     Indication: Seasonal allergy
     Route: 060
  6. SYNTHROID [Concomitant]
     Active Substance: LEVOTHYROXINE SODIUM
     Indication: Product used for unknown indication
  7. HYDROCHLOROTHIAZIDE [Concomitant]
     Active Substance: HYDROCHLOROTHIAZIDE
     Indication: Product used for unknown indication
  8. LISINOPRIL [Concomitant]
     Active Substance: LISINOPRIL
     Indication: Product used for unknown indication

REACTIONS (5)
  - Throat irritation [Recovered/Resolved]
  - Throat irritation [Recovered/Resolved]
  - Dyspnoea [Recovered/Resolved]
  - Nasal congestion [Recovered/Resolved]
  - Off label use [Recovered/Resolved]
